FAERS Safety Report 6901591-9 (Version None)
Quarter: 2010Q3

REPORT INFORMATION
  Report Type: 
  Country: None (occurrence: None)
  Receive Date: 20100803
  Receipt Date: 20100727
  Transmission Date: 20110219
  Serious: Yes (Hospitalization)
  Sender: FDA-Public Use
  Company Number: ZA-SANOFI-AVENTIS-2010SA035173

PATIENT
  Sex: Female

DRUGS (8)
  1. TAXOTERE [Suspect]
     Indication: BREAST CANCER
     Route: 042
     Dates: start: 20100212, end: 20100405
  2. ADRIAMYCIN PFS [Concomitant]
     Indication: CHEMOTHERAPY
  3. CYCLOPHOSPHAMIDE [Concomitant]
     Indication: CHEMOTHERAPY
  4. DEXAMETHASONE [Concomitant]
     Indication: PREMEDICATION
     Dates: start: 20100212
  5. DEXAMETHASONE [Concomitant]
     Dates: start: 20100311
  6. DEXAMETHASONE [Concomitant]
     Dates: start: 20100325
  7. DEXAMETHASONE [Concomitant]
     Dates: start: 20100405
  8. TENORMIN [Concomitant]
     Indication: HYPERTENSION

REACTIONS (1)
  - PULMONARY HYPERTENSION [None]
